FAERS Safety Report 23962373 (Version 2)
Quarter: 2024Q2

REPORT INFORMATION
  Report Type: Spontaneous
  Country: DE (occurrence: DE)
  Receive Date: 20240611
  Receipt Date: 20240613
  Transmission Date: 20240716
  Serious: Yes (Death)
  Sender: FDA-Public Use
  Company Number: DE-DCGMA-24203370

PATIENT
  Age: 73 Year
  Sex: Male
  Weight: 100 kg

DRUGS (7)
  1. LEUCOVORIN CALCIUM [Suspect]
     Active Substance: LEUCOVORIN CALCIUM
     Indication: Colon cancer metastatic
     Dosage: 200 MG
  2. AVASTIN [Suspect]
     Active Substance: BEVACIZUMAB
     Indication: Colon cancer metastatic
     Dosage: 5 MG/KG KG
     Route: 042
     Dates: start: 20240412
  3. IRINOTECAN [Suspect]
     Active Substance: IRINOTECAN
     Indication: Colon cancer metastatic
  4. FLUOROURACIL [Suspect]
     Active Substance: FLUOROURACIL
     Indication: Colon cancer metastatic
     Dosage: 2600 MG/M2
  5. CANDESARTAN [Concomitant]
     Active Substance: CANDESARTAN
     Dosage: 8 MG
     Route: 048
  6. INSULIN NOS [Concomitant]
     Active Substance: INSULIN NOS
     Route: 058
  7. INSULIN NOS [Concomitant]
     Active Substance: INSULIN NOS
     Route: 058

REACTIONS (2)
  - Perforation [Fatal]
  - Neoplasm progression [Unknown]

NARRATIVE: CASE EVENT DATE: 20240509
